FAERS Safety Report 8385410 (Version 2)
Quarter: 2012Q4

REPORT INFORMATION
  Report Type: 
  Country: US (occurrence: US)
  Receive Date: 20120202
  Receipt Date: 20121221
  Transmission Date: 20130627
  Serious: Yes (Disabling, Other)
  Sender: FDA-Public Use
  Company Number: US-JNJFOC-20120112326

PATIENT
  Sex: Male
  Weight: 107.96 kg

DRUGS (5)
  1. LEVAQUIN [Suspect]
     Indication: BACTERIAL INFECTION
     Dosage: for 1 week
     Route: 048
     Dates: start: 201212
  2. LEVAQUIN [Suspect]
     Indication: BACTERIAL INFECTION
     Route: 048
     Dates: start: 20101222, end: 201101
  3. LEVAQUIN [Suspect]
     Indication: SCROTAL CYST
     Route: 048
     Dates: start: 20101222, end: 201101
  4. LEVAQUIN [Suspect]
     Indication: SCROTAL CYST
     Dosage: for 1 week
     Route: 048
     Dates: start: 201212
  5. ALEVE [Concomitant]
     Indication: PAIN
     Route: 048
     Dates: start: 201011, end: 201107

REACTIONS (33)
  - Affective disorder [Recovered/Resolved]
  - Tendon rupture [Recovered/Resolved]
  - Mental disorder [Recovering/Resolving]
  - Rotator cuff syndrome [Not Recovered/Not Resolved]
  - Skin discolouration [Recovered/Resolved]
  - Genital swelling [Recovered/Resolved]
  - Muscle rupture [Recovered/Resolved]
  - Tendon rupture [Recovered/Resolved]
  - Anal sphincter atony [Recovered/Resolved]
  - Movement disorder [Not Recovered/Not Resolved]
  - Prostatomegaly [Not Recovered/Not Resolved]
  - Genital disorder male [Unknown]
  - Memory impairment [Not Recovered/Not Resolved]
  - Fungal infection [Unknown]
  - Genital rash [Recovering/Resolving]
  - Fall [Recovered/Resolved]
  - Pain of skin [Recovered/Resolved]
  - Erythema [Recovered/Resolved]
  - Photosensitivity reaction [Not Recovered/Not Resolved]
  - Haemorrhoids [Not Recovered/Not Resolved]
  - Abnormal loss of weight [Recovered/Resolved]
  - Malaise [Recovered/Resolved]
  - Skin discolouration [Recovered/Resolved]
  - Feeling abnormal [Recovered/Resolved]
  - Rash [Recovering/Resolving]
  - Skin exfoliation [Recovered/Resolved]
  - Scar [Recovered/Resolved]
  - Anorectal discomfort [Recovered/Resolved]
  - Anxiety [Recovered/Resolved]
  - Paranoia [Not Recovered/Not Resolved]
  - Erythema [Recovered/Resolved]
  - Visual brightness [Recovered/Resolved]
  - Mental impairment [Unknown]
